FAERS Safety Report 6498563-8 (Version None)
Quarter: 2009Q4

REPORT INFORMATION
  Report Type: 
  Country: None (occurrence: None)
  Receive Date: 20091127
  Receipt Date: 20090923
  Transmission Date: 20100525
  Serious: Yes (Other)
  Sender: FDA-Public Use
  Company Number: 292028

PATIENT
  Age: 73 Year
  Sex: Female
  Weight: 54.9 kg

DRUGS (2)
  1. NOVOLOG [Suspect]
     Indication: TYPE 1 DIABETES MELLITUS
     Dosage: 8-10 U BEFORE MEALS, TID, SUBCUTANEOUS
     Route: 058
     Dates: start: 20090101
  2. LANTUS [Suspect]
     Indication: TYPE 1 DIABETES MELLITUS
     Dosage: AT NIGHT, QD

REACTIONS (4)
  - HEADACHE [None]
  - HYPOAESTHESIA [None]
  - HYPOGLYCAEMIC UNCONSCIOUSNESS [None]
  - TINNITUS [None]
